FAERS Safety Report 4677609-3 (Version None)
Quarter: 2005Q2

REPORT INFORMATION
  Report Type: 
  Country: None (occurrence: None)
  Receive Date: 20050526
  Receipt Date: 20050526
  Transmission Date: 20051028
  Serious: Yes (Hospitalization)
  Sender: FDA-Public Use
  Company Number: None

PATIENT
  Age: 81 Year
  Sex: Male
  Weight: 71.6683 kg

DRUGS (1)
  1. CIPRO [Suspect]
     Indication: OSTEOARTHRITIS
     Dosage: PO 1 X DAILY
     Route: 048
     Dates: start: 20050411, end: 20050415

REACTIONS (2)
  - GASTRIC ULCER [None]
  - HEART RATE IRREGULAR [None]
